FAERS Safety Report 6154244-1 (Version None)
Quarter: 2009Q2

REPORT INFORMATION
  Report Type: 
  Country: None (occurrence: None)
  Receive Date: 20090410
  Receipt Date: 20090401
  Transmission Date: 20091009
  Serious: Yes (Death, Hospitalization)
  Sender: FDA-Public Use
  Company Number: FABR-10917

PATIENT
  Age: 83 Year
  Sex: Male
  Weight: 54 kg

DRUGS (11)
  1. FABRAZYME [Suspect]
     Indication: FABRY'S DISEASE
     Dosage: 45 MG/KG, Q2W, INTRAVENOUS
     Route: 042
     Dates: start: 20010322, end: 20041125
  2. ASPIRIN [Concomitant]
  3. ACETAMINOPHEN [Concomitant]
  4. PIMOBENDAN (PIMOBENDAN) [Concomitant]
  5. NICORANDIL (NICORANDIL) [Concomitant]
  6. SODIUM ALGINATE (SODIUM ALGINATE) [Concomitant]
  7. FUROSEMIDE [Concomitant]
  8. OMEPRAZOLE [Concomitant]
  9. HYDROXYZINE PAMOATE [Concomitant]
  10. ALLOPURINOL [Concomitant]
  11. WARFARIN SODIUM [Concomitant]

REACTIONS (18)
  - ATRIOVENTRICULAR BLOCK COMPLETE [None]
  - BLOOD LACTATE DEHYDROGENASE INCREASED [None]
  - BUNDLE BRANCH BLOCK LEFT [None]
  - C-REACTIVE PROTEIN INCREASED [None]
  - CARDIAC FAILURE CONGESTIVE [None]
  - CHEST X-RAY ABNORMAL [None]
  - CONDITION AGGRAVATED [None]
  - DYSPNOEA [None]
  - HAEMATOCRIT DECREASED [None]
  - HAEMOGLOBIN DECREASED [None]
  - LIVER FUNCTION TEST ABNORMAL [None]
  - MITRAL VALVE INCOMPETENCE [None]
  - MULTI-ORGAN DISORDER [None]
  - PNEUMONIA [None]
  - PULMONARY CONGESTION [None]
  - RENAL FAILURE [None]
  - RENAL FUNCTION TEST ABNORMAL [None]
  - TRICUSPID VALVE INCOMPETENCE [None]
